FAERS Safety Report 23314805 (Version 2)
Quarter: 2024Q1

REPORT INFORMATION
  Report Type: Other
  Country: GB (occurrence: GB)
  Receive Date: 20231219
  Receipt Date: 20240203
  Transmission Date: 20240409
  Serious: Yes (Death, Hospitalization)
  Sender: FDA-Public Use
  Company Number: None

PATIENT
  Sex: Female

DRUGS (3)
  1. TRAMADOL [Interacting]
     Active Substance: TRAMADOL\TRAMADOL HYDROCHLORIDE
     Indication: Back pain
     Dosage: UNK
     Route: 065
     Dates: start: 20201220
  2. TRAMADOL [Interacting]
     Active Substance: TRAMADOL\TRAMADOL HYDROCHLORIDE
     Indication: Back pain
  3. WARFARIN [Interacting]
     Active Substance: WARFARIN
     Indication: Product used for unknown indication
     Dosage: UNK
     Route: 065

REACTIONS (6)
  - Subarachnoid haemorrhage [Fatal]
  - Malaise [Fatal]
  - Pyelonephritis [Fatal]
  - International normalised ratio increased [Fatal]
  - Labelled drug-drug interaction medication error [Fatal]
  - Drug interaction [Fatal]

NARRATIVE: CASE EVENT DATE: 20210108
